FAERS Safety Report 9387056 (Version 1)
Quarter: 2013Q3

REPORT INFORMATION
  Report Type: Spontaneous
  Country: US (occurrence: None)
  Receive Date: 20130703
  Receipt Date: 20130703
  Transmission Date: 20140515
  Serious: Yes (Other)
  Sender: FDA-Public Use
  Company Number: None

PATIENT
  Age: 47 Year
  Sex: Female

DRUGS (1)
  1. BUPROPION XL [Suspect]
     Route: 048
     Dates: start: 20090101, end: 20130702

REACTIONS (4)
  - Product substitution issue [None]
  - Product quality issue [None]
  - Drug ineffective [None]
  - Product solubility abnormal [None]
